FAERS Safety Report 5351049-6 (Version None)
Quarter: 2007Q2

REPORT INFORMATION
  Report Type: 
  Country: None (occurrence: None)
  Receive Date: 20070608
  Receipt Date: 20070530
  Transmission Date: 20071010
  Serious: Yes (Hospitalization)
  Sender: FDA-Public Use
  Company Number: IN-ALLERGAN-0705755US

PATIENT
  Sex: Male

DRUGS (2)
  1. BOTOX [Suspect]
     Indication: MYOCLONUS
     Dosage: 8 UNITS, SINGLE
     Route: 030
  2. BOTOX [Suspect]
     Dosage: 10 UNITS, SINGLE
     Route: 030

REACTIONS (5)
  - DROOLING [None]
  - DYSPHONIA [None]
  - EAR PAIN [None]
  - NASOPHARYNGEAL REFLUX [None]
  - PARALYSIS [None]
